FAERS Safety Report 15864739 (Version 1)
Quarter: 2019Q1

REPORT INFORMATION
  Report Type: Spontaneous
  Country: US (occurrence: US)
  Receive Date: 20190124
  Receipt Date: 20190124
  Transmission Date: 20190417
  Serious: Yes (Hospitalization)
  Sender: FDA-Public Use
  Company Number: US-MYLANLABS-2019M1004621

PATIENT
  Age: 51 Year
  Sex: Male

DRUGS (3)
  1. RITUXIMAB. [Concomitant]
     Active Substance: RITUXIMAB
     Indication: B-CELL LYMPHOMA
     Dosage: UNK
     Route: 065
  2. BENDAMUSTINE HYDROCHLORIDE. [Suspect]
     Active Substance: BENDAMUSTINE HYDROCHLORIDE
     Indication: B-CELL LYMPHOMA
     Dosage: ADMINISTERED ON DAY 1 AND DAY 2 OF A 28-DAY CYCLE
     Route: 065
  3. AMLODIPINE/BENAZEPRIL [Concomitant]
     Active Substance: AMLODIPINE BESYLATE\BENAZEPRIL HYDROCHLORIDE
     Indication: ESSENTIAL HYPERTENSION
     Route: 065

REACTIONS (2)
  - Gitelman^s syndrome [Recovered/Resolved]
  - Blood aldosterone decreased [Recovered/Resolved]
